FAERS Safety Report 4407558-7 (Version None)
Quarter: 2004Q3

REPORT INFORMATION
  Report Type: 
  Country: None (occurrence: None)
  Receive Date: 20040726
  Receipt Date: 20040220
  Transmission Date: 20050211
  Serious: No
  Sender: FDA-Public Use
  Company Number: US-GLAXOSMITHKLINE-A0499229A

PATIENT
  Age: 50 Year
  Sex: Female

DRUGS (18)
  1. HYCAMTIN [Suspect]
     Indication: ILL-DEFINED DISORDER
     Dosage: 5MG CYCLIC
     Route: 042
     Dates: start: 20040210
  2. MAGNESIUM SUPPLEMENT [Concomitant]
  3. THALIDOMIDE [Concomitant]
  4. COMPAZINE [Concomitant]
  5. POTASSIUM [Concomitant]
  6. CARAFATE [Concomitant]
  7. RITALIN [Concomitant]
  8. MARINOL [Concomitant]
     Route: 065
  9. SENOKOT [Concomitant]
     Route: 065
  10. NYSTATIN [Concomitant]
  11. DYAZIDE [Concomitant]
  12. LASIX [Concomitant]
  13. CLARITIN [Concomitant]
  14. TOPROL-XL [Concomitant]
     Route: 065
  15. LEXAPRO [Concomitant]
  16. AMBIEN [Concomitant]
  17. MOBIC [Concomitant]
  18. AVALIDE [Concomitant]

REACTIONS (1)
  - MUSCLE SPASMS [None]
